FAERS Safety Report 13489569 (Version 2)
Quarter: 2017Q3

REPORT INFORMATION
  Report Type: Report from Study
  Country: None (occurrence: US)
  Receive Date: 20170427
  Receipt Date: 20170915
  Transmission Date: 20171127
  Serious: Yes (Death)
  Sender: FDA-Public Use
  Company Number: US-ABBVIE-17K-163-1956105-00

PATIENT
  Sex: Male
  Weight: 99.43 kg

DRUGS (1)
  1. ANDROGEL [Suspect]
     Active Substance: TESTOSTERONE
     Indication: PRODUCT USED FOR UNKNOWN INDICATION
     Dosage: 20.25/2 PUMPS DAILY
     Route: 061
     Dates: start: 20160331

REACTIONS (1)
  - Myocardial infarction [Fatal]
